FAERS Safety Report 13357739 (Version 3)
Quarter: 2017Q2

REPORT INFORMATION
  Report Type: Report from Study
  Country: US (occurrence: US)
  Receive Date: 20170322
  Receipt Date: 20170428
  Transmission Date: 20170830
  Serious: Yes (Hospitalization, Other)
  Sender: FDA-Public Use
  Company Number: US-009507513-1703USA004325

PATIENT
  Age: 65 Year
  Sex: Male

DRUGS (5)
  1. OXYCODONE [Concomitant]
     Active Substance: OXYCODONE
     Indication: PAIN
     Dosage: UNK
  2. ALBUTEROL SULFATE. [Concomitant]
     Active Substance: ALBUTEROL SULFATE
     Dosage: UNK
  3. PEMBROLIZUMAB. [Suspect]
     Active Substance: PEMBROLIZUMAB
     Dosage: 200 MG, Q3W
     Route: 042
     Dates: start: 20170328, end: 20170328
  4. PEMBROLIZUMAB. [Suspect]
     Active Substance: PEMBROLIZUMAB
     Indication: SQUAMOUS CELL CARCINOMA OF HEAD AND NECK
     Dosage: 200 MG, Q3W
     Route: 042
     Dates: start: 20170307, end: 20170307
  5. POTASSIUM SODIUM HYDROGEN CITRATE [Concomitant]
     Dosage: UNK
     Route: 048

REACTIONS (15)
  - Mouth swelling [Unknown]
  - Heart rate increased [Unknown]
  - Muscle twitching [Recovered/Resolved]
  - Oropharyngeal pain [Recovering/Resolving]
  - Mouth haemorrhage [Recovered/Resolved]
  - Malignant neoplasm progression [Recovering/Resolving]
  - Hypotension [Unknown]
  - Lung infiltration [Unknown]
  - Cough [Unknown]
  - Post procedural haemorrhage [Not Recovered/Not Resolved]
  - Hypersomnia [Unknown]
  - Tremor [Recovered/Resolved]
  - Haemoglobin decreased [Unknown]
  - Oral pain [Recovering/Resolving]
  - Hypoaesthesia [Unknown]

NARRATIVE: CASE EVENT DATE: 201703
